FAERS Safety Report 12299761 (Version 2)
Quarter: 2016Q2

REPORT INFORMATION
  Report Type: Spontaneous
  Country: DE (occurrence: DE)
  Receive Date: 20160425
  Receipt Date: 20160614
  Transmission Date: 20160815
  Serious: Yes (Hospitalization, Other)
  Sender: FDA-Public Use
  Company Number: DE-BAYER-2016-071514

PATIENT
  Age: 43 Year
  Sex: Male
  Weight: 105 kg

DRUGS (6)
  1. DECORTIN-H [Suspect]
     Active Substance: PREDNISOLONE HEMISUCCINATE
     Indication: ASTHMA
  2. AVALOX [Suspect]
     Active Substance: MOXIFLOXACIN HYDROCHLORIDE
     Indication: ASTHMA
  3. DECORTIN-H [Suspect]
     Active Substance: PREDNISOLONE HEMISUCCINATE
     Indication: BRONCHITIS
     Dosage: 20 MG, BID
     Dates: start: 2016
  4. SERETIDE [Suspect]
     Active Substance: FLUTICASONE PROPIONATE\SALMETEROL XINAFOATE
     Indication: ASTHMA
     Route: 055
  5. AVALOX [Suspect]
     Active Substance: MOXIFLOXACIN HYDROCHLORIDE
     Indication: PNEUMONIA
     Dosage: 400 MG, QD
     Dates: start: 2016
  6. AVALOX [Suspect]
     Active Substance: MOXIFLOXACIN HYDROCHLORIDE
     Indication: BRONCHITIS

REACTIONS (6)
  - Altered state of consciousness [None]
  - Lumbar vertebral fracture [Recovering/Resolving]
  - Generalised tonic-clonic seizure [Not Recovered/Not Resolved]
  - Epilepsy [None]
  - Fall [None]
  - Postictal state [None]

NARRATIVE: CASE EVENT DATE: 20160202
